FAERS Safety Report 6045142-2 (Version None)
Quarter: 2009Q1

REPORT INFORMATION
  Report Type: 
  Country: None (occurrence: None)
  Receive Date: 20090121
  Receipt Date: 20081229
  Transmission Date: 20090719
  Serious: Yes (Other)
  Sender: FDA-Public Use
  Company Number: TH-PFIZER INC-2009150372

PATIENT

DRUGS (48)
  1. BLINDED *PLACEBO [Suspect]
     Indication: SYSTEMIC CANDIDA
     Dosage: UNK
     Dates: start: 20081206
  2. BLINDED ANIDULAFUNGIN [Suspect]
     Indication: SYSTEMIC CANDIDA
     Dosage: UNK
     Dates: start: 20081206
  3. VORICONAZOLE [Suspect]
     Dosage: 200 MG, 2X/DAY
     Route: 042
     Dates: start: 20081206
  4. VANCOMYCIN [Concomitant]
     Route: 042
     Dates: start: 20081126, end: 20081221
  5. VANCOMYCIN [Concomitant]
     Dates: start: 20081126, end: 20081221
  6. TIENAM [Concomitant]
     Route: 042
     Dates: start: 20081126, end: 20081212
  7. TIENAM [Concomitant]
     Dates: start: 20081126, end: 20081212
  8. AMLODIPINE BESILATE [Concomitant]
     Dosage: UNK
     Route: 048
     Dates: start: 20081127
  9. AMLODIPINE BESILATE [Concomitant]
     Route: 048
     Dates: start: 20081127
  10. SENOKOT [Concomitant]
     Route: 048
     Dates: start: 20081129, end: 20081215
  11. SENOKOT [Concomitant]
     Route: 048
     Dates: start: 20081129, end: 20081215
  12. ACYCLOVIR [Concomitant]
     Route: 048
     Dates: start: 20081201, end: 20081218
  13. ACYCLOVIR [Concomitant]
     Route: 048
     Dates: start: 20081201, end: 20081218
  14. FLUCONAZOLE [Concomitant]
     Route: 048
     Dates: start: 20081201, end: 20081206
  15. FLUCONAZOLE [Concomitant]
     Route: 048
     Dates: start: 20081201, end: 20081206
  16. ZOFRAN [Concomitant]
     Route: 042
     Dates: start: 20081201, end: 20081208
  17. ZOFRAN [Concomitant]
     Dates: start: 20081201, end: 20081208
  18. DEXAMETHASONE [Concomitant]
     Route: 042
     Dates: start: 20081201, end: 20081203
  19. DEXAMETHASONE [Concomitant]
     Dates: start: 20081201, end: 20081203
  20. IDARUBICIN [Concomitant]
     Route: 042
     Dates: start: 20081202, end: 20081204
  21. IDARUBICIN [Concomitant]
     Dates: start: 20081202, end: 20081204
  22. ALL OTHER THERAPEUTIC PRODUCTS [Concomitant]
     Route: 048
     Dates: start: 20081201, end: 20081215
  23. ALL OTHER THERAPEUTIC PRODUCTS [Concomitant]
     Route: 048
     Dates: start: 20081201, end: 20081215
  24. ATIVAN [Concomitant]
     Route: 048
     Dates: start: 20081201, end: 20081215
  25. ATIVAN [Concomitant]
     Route: 048
     Dates: start: 20081201, end: 20081215
  26. ALLOPURINOL [Concomitant]
     Route: 048
     Dates: start: 20081201, end: 20081208
  27. ALLOPURINOL [Concomitant]
     Route: 048
     Dates: start: 20081201, end: 20081208
  28. PROCTOSEDYL OINTMENT ^ROCHE^ [Concomitant]
     Dates: start: 20081203
  29. PROCTOSEDYL OINTMENT ^ROCHE^ [Concomitant]
     Dates: start: 20081203
  30. PLASIL [Concomitant]
     Route: 042
     Dates: start: 20081204, end: 20081211
  31. PLASIL [Concomitant]
     Dates: start: 20081204, end: 20081211
  32. AMPHOTERICIN B [Concomitant]
     Route: 017
     Dates: start: 20081204, end: 20081206
  33. AMPHOTERICIN B [Concomitant]
     Dates: start: 20081204, end: 20081206
  34. ALL OTHER THERAPEUTIC PRODUCTS [Concomitant]
     Route: 042
     Dates: start: 20081204, end: 20081206
  35. ALL OTHER THERAPEUTIC PRODUCTS [Concomitant]
     Dates: start: 20081204, end: 20081206
  36. PARACETAMOL [Concomitant]
     Route: 048
     Dates: start: 20081204, end: 20081206
  37. PARACETAMOL [Concomitant]
     Route: 048
     Dates: start: 20081204, end: 20081206
  38. ONDANSETRON [Concomitant]
     Dosage: UNK
     Route: 042
     Dates: start: 20081206, end: 20081215
  39. ATIVAN [Concomitant]
     Dosage: UNK
     Route: 048
     Dates: start: 20081209, end: 20081215
  40. OMEPRAZOLE [Concomitant]
     Dosage: UNK
     Route: 048
     Dates: start: 20081210
  41. VANCOMYCIN [Concomitant]
     Dosage: UNK
     Route: 042
     Dates: start: 20081210, end: 20081215
  42. MEROPENEM [Concomitant]
     Dosage: UNK
     Route: 048
     Dates: start: 20081210
  43. ROPECT [Concomitant]
     Dosage: UNK
     Route: 048
     Dates: start: 20081215
  44. KENALOG [Concomitant]
     Dosage: UNK
     Route: 048
     Dates: start: 20081216
  45. FUCIDINE CAP [Concomitant]
     Dosage: UNK
     Route: 048
     Dates: start: 20081216
  46. ACYCLOVIR [Concomitant]
     Dosage: UNK
     Route: 042
     Dates: start: 20081218
  47. PLASIL [Concomitant]
     Dosage: UNK
     Route: 048
     Dates: start: 20081221
  48. ATIVAN [Suspect]
     Dosage: UNK
     Route: 048
     Dates: start: 20081216

REACTIONS (1)
  - HALLUCINATIONS, MIXED [None]
